FAERS Safety Report 17163007 (Version 3)
Quarter: 2020Q2

REPORT INFORMATION
  Report Type: Spontaneous
  Country: US (occurrence: US)
  Receive Date: 20191217
  Receipt Date: 20200515
  Transmission Date: 20200713
  Serious: Yes (Hospitalization, Other)
  Sender: FDA-Public Use
  Company Number: US-GILEAD-2019-0442874

PATIENT
  Age: 46 Year
  Sex: Male

DRUGS (15)
  1. CALCITROL [CALCITRIOL] [Concomitant]
     Active Substance: CALCITRIOL
  2. ERGOCALCIFEROL. [Concomitant]
     Active Substance: ERGOCALCIFEROL
  3. NORVIR [Concomitant]
     Active Substance: RITONAVIR
  4. HYDROCORTISONE. [Concomitant]
     Active Substance: HYDROCORTISONE
  5. EPZICOM [Concomitant]
     Active Substance: ABACAVIR SULFATE\LAMIVUDINE
  6. POLYTRIM [Concomitant]
     Active Substance: POLYMYXIN B SULFATE\TRIMETHOPRIM SULFATE
  7. LEXIVA [Concomitant]
     Active Substance: FOSAMPRENAVIR CALCIUM
  8. LYRICA [Concomitant]
     Active Substance: PREGABALIN
  9. ATRIPLA [Suspect]
     Active Substance: EFAVIRENZ\EMTRICITABINE\TENOFOVIR DISOPROXIL FUMARATE
     Indication: PRODUCT USED FOR UNKNOWN INDICATION
     Dosage: UNK
     Route: 048
     Dates: start: 200704, end: 201810
  10. CRESTOR [Concomitant]
     Active Substance: ROSUVASTATIN CALCIUM
  11. LISINOPRIL. [Concomitant]
     Active Substance: LISINOPRIL
  12. TRUVADA [Suspect]
     Active Substance: EMTRICITABINE\TENOFOVIR DISOPROXIL FUMARATE
     Indication: PRODUCT USED FOR UNKNOWN INDICATION
     Dosage: 1 DOSAGE
     Route: 048
     Dates: start: 200901, end: 20110624
  13. NEURONTIN [Concomitant]
     Active Substance: GABAPENTIN
  14. PREDNISOL [PREDNISOLONE SODIUM PHOSPHATE] [Concomitant]
  15. TRAMADOL. [Concomitant]
     Active Substance: TRAMADOL

REACTIONS (9)
  - Pain [Unknown]
  - Anxiety [Unknown]
  - Chronic kidney disease [Unknown]
  - Fanconi syndrome acquired [Unknown]
  - Anhedonia [Unknown]
  - Renal failure [Unknown]
  - Emotional distress [Unknown]
  - Acute kidney injury [Unknown]
  - Economic problem [Unknown]

NARRATIVE: CASE EVENT DATE: 20090217
